FAERS Safety Report 17655725 (Version 1)
Quarter: 2020Q2

REPORT INFORMATION
  Report Type: Spontaneous
  Country: ES (occurrence: ES)
  Receive Date: 20200410
  Receipt Date: 20200410
  Transmission Date: 20200713
  Serious: Yes (Life-Threatening, Hospitalization)
  Sender: FDA-Public Use
  Company Number: ES-TEVA-2020-ES-1221532

PATIENT
  Age: 73 Year
  Sex: Female
  Weight: 60.15 kg

DRUGS (1)
  1. CICLOSPORINA (406A) [Suspect]
     Active Substance: CYCLOSPORINE
     Indication: RENAL TRANSPLANT
     Dosage: SANDIMMUN NEORAL 100-0-100 MG, UNIT DOSE: 100 MG
     Route: 048
     Dates: start: 20180305, end: 20190806

REACTIONS (1)
  - Hypertensive crisis [Recovered/Resolved]

NARRATIVE: CASE EVENT DATE: 20190806
